FAERS Safety Report 20718175 (Version 1)
Quarter: 2022Q2

REPORT INFORMATION
  Report Type: Spontaneous
  Country: FR (occurrence: FR)
  Receive Date: 20220418
  Receipt Date: 20220418
  Transmission Date: 20220721
  Serious: Yes (Hospitalization)
  Sender: FDA-Public Use
  Company Number: FR-AFSSAPS-SE20220425

PATIENT
  Age: 94 Year
  Sex: Male
  Weight: 84 kg

DRUGS (6)
  1. PANTOPRAZOLE [Suspect]
     Active Substance: PANTOPRAZOLE
     Indication: Product used for unknown indication
     Dosage: 20 MILLIGRAM, DAILY
     Route: 048
     Dates: start: 202011
  2. FUROSEMIDE [Suspect]
     Active Substance: FUROSEMIDE
     Indication: Cardiac failure
     Dosage: 40 MILLIGRAM, DAILY
     Route: 048
     Dates: start: 202101
  3. EBASTINE [Suspect]
     Active Substance: EBASTINE
     Indication: Pruritus
     Dosage: 5 MILLIGRAM, DAILY
     Route: 048
     Dates: start: 20210928, end: 20211028
  4. ELIQUIS [Suspect]
     Active Substance: APIXABAN
     Indication: Atrial fibrillation
     Dosage: 10 MILLIGRAM, DAILY, 5MG X2/J
     Route: 048
     Dates: start: 202011, end: 20220307
  5. PREGABALIN [Suspect]
     Active Substance: PREGABALIN
     Indication: Product used for unknown indication
     Dosage: 50 MILLIGRAM, DAILY, 25 MG X 2/DAY
     Route: 048
     Dates: start: 20210301
  6. CANDESARTAN CILEXETIL [Suspect]
     Active Substance: CANDESARTAN CILEXETIL
     Indication: Hypertension
     Dosage: 4 MILLIGRAM, DAILY
     Route: 048
     Dates: start: 20210101

REACTIONS (1)
  - Pleural effusion [Recovering/Resolving]
